FAERS Safety Report 13710625 (Version 1)
Quarter: 2017Q3

REPORT INFORMATION
  Report Type: Spontaneous
  Country: US (occurrence: US)
  Receive Date: 20170702
  Receipt Date: 20170702
  Transmission Date: 20171127
  Serious: Yes (Disabling)
  Sender: FDA-Public Use
  Company Number: None

PATIENT
  Age: 64 Year
  Sex: Male
  Weight: 85.5 kg

DRUGS (2)
  1. CIPROFLOXACINE [Suspect]
     Active Substance: CIPROFLOXACIN
     Indication: NEPHROLITHIASIS
     Dosage: ?          OTHER STRENGTH:MG;QUANTITY:20 TABLET(S);?
     Route: 048
     Dates: start: 20170621, end: 20170630
  2. CIPROFLOXACINE [Suspect]
     Active Substance: CIPROFLOXACIN
     Indication: KIDNEY INFECTION
     Dosage: ?          OTHER STRENGTH:MG;QUANTITY:20 TABLET(S);?
     Route: 048
     Dates: start: 20170621, end: 20170630

REACTIONS (5)
  - Depression [None]
  - Condition aggravated [None]
  - Malaise [None]
  - Arthralgia [None]
  - Myalgia [None]

NARRATIVE: CASE EVENT DATE: 20170628
